FAERS Safety Report 15329276 (Version 1)
Quarter: 2018Q3

REPORT INFORMATION
  Report Type: Spontaneous
  Country: US (occurrence: US)
  Receive Date: 20180829
  Receipt Date: 20180829
  Transmission Date: 20181010
  Serious: No
  Sender: FDA-Public Use
  Company Number: US-GLAXOSMITHKLINE-US2018151904

PATIENT
  Age: 51 Year
  Sex: Female

DRUGS (1)
  1. VENTOLIN HFA [Suspect]
     Active Substance: ALBUTEROL SULFATE
     Indication: PRODUCT USED FOR UNKNOWN INDICATION
     Dosage: UNK UNK, PRN
     Route: 055
     Dates: start: 201806

REACTIONS (4)
  - Tremor [Unknown]
  - Heart rate increased [Unknown]
  - Respiratory tract congestion [Unknown]
  - Insomnia [Unknown]

NARRATIVE: CASE EVENT DATE: 20180821
